FAERS Safety Report 7573487-3 (Version None)
Quarter: 2011Q2

REPORT INFORMATION
  Report Type: 
  Country: None (occurrence: None)
  Receive Date: 20110627
  Receipt Date: 20110613
  Transmission Date: 20111010
  Serious: Yes (Hospitalization)
  Sender: FDA-Public Use
  Company Number: US-JNJFOC-20100406861

PATIENT
  Sex: Female
  Weight: 27.8 kg

DRUGS (6)
  1. INFLIXIMAB [Suspect]
     Route: 042
     Dates: start: 20090903
  2. INFLIXIMAB [Suspect]
     Indication: CROHN'S DISEASE
     Route: 042
     Dates: start: 20070329
  3. MESALAMINE [Concomitant]
     Route: 048
  4. FERROUS SULFATE TAB [Concomitant]
  5. FOLIC ACID [Concomitant]
  6. MULTI-VITAMINS [Concomitant]

REACTIONS (3)
  - RECTAL ABSCESS [None]
  - CROHN'S DISEASE [None]
  - VULVAL ABSCESS [None]
